FAERS Safety Report 5933082-6 (Version None)
Quarter: 2008Q4

REPORT INFORMATION
  Report Type: 
  Country: None (occurrence: None)
  Receive Date: 20081023
  Receipt Date: 20081013
  Transmission Date: 20090506
  Serious: Yes (Death, Other)
  Sender: FDA-Public Use
  Company Number: A-US2007-17925

PATIENT
  Age: 71 Year
  Sex: Female
  Weight: 58 kg

DRUGS (9)
  1. TRACLEER [Suspect]
     Indication: PULMONARY ARTERIAL HYPERTENSION
     Dosage: 125 MG, BID, ORAL 62.5 MG, QD, ORAL 62.5 MG, BID, ORAL
     Route: 048
     Dates: start: 20060522, end: 20060626
  2. TRACLEER [Suspect]
     Indication: PULMONARY ARTERIAL HYPERTENSION
     Dosage: 125 MG, BID, ORAL 62.5 MG, QD, ORAL 62.5 MG, BID, ORAL
     Route: 048
     Dates: start: 20060627, end: 20070927
  3. TRACLEER [Suspect]
     Indication: PULMONARY ARTERIAL HYPERTENSION
     Dosage: 125 MG, BID, ORAL 62.5 MG, QD, ORAL 62.5 MG, BID, ORAL
     Route: 048
     Dates: start: 20070927
  4. LEVOXYL [Concomitant]
  5. NEXIUM [Concomitant]
  6. POTASSIUM CHLORIDE [Concomitant]
  7. TRAZODONE (TRAZODONE HYDROCHLORIDE) [Concomitant]
  8. OXYBUTYNIN (OXYBUTYNIN HYDROCHLORIDE) [Concomitant]
  9. CYMBALTA [Concomitant]

REACTIONS (6)
  - ANAEMIA [None]
  - DYSPNOEA [None]
  - HEPATIC FAILURE [None]
  - PULMONARY HYPERTENSION [None]
  - RESPIRATORY FAILURE [None]
  - SCLERODERMA [None]
